FAERS Safety Report 7015491-X (Version None)
Quarter: 2010Q3

REPORT INFORMATION
  Report Type: 
  Country: None (occurrence: None)
  Receive Date: 20100927
  Receipt Date: 20100916
  Transmission Date: 20110219
  Serious: Yes (Hospitalization, Other)
  Sender: FDA-Public Use
  Company Number: AU-JNJFOC-20100905967

PATIENT
  Sex: Female
  Weight: 79 kg

DRUGS (11)
  1. DOXIL [Suspect]
     Indication: OVARIAN CANCER
     Route: 042
  2. DOXIL [Suspect]
     Route: 042
  3. IRBESARTAN [Concomitant]
     Indication: HYPERTENSION
     Route: 065
  4. LERCANIDIPINE [Concomitant]
     Indication: HYPERTENSION
  5. DULOXETINE [Concomitant]
     Indication: DEPRESSION
     Route: 065
  6. QUETIAPINE [Concomitant]
     Indication: SLEEP DISORDER THERAPY
     Route: 065
  7. LOVAZA [Concomitant]
     Indication: ROUTINE HEALTH MAINTENANCE
     Route: 065
  8. GREEN TEA [Concomitant]
     Indication: ROUTINE HEALTH MAINTENANCE
     Route: 065
  9. ERGOCALCIFEROL [Concomitant]
     Indication: ROUTINE HEALTH MAINTENANCE
     Route: 065
  10. RESVERATROL [Concomitant]
     Indication: CARDIAC DISORDER
     Route: 065
  11. UBIDECARENONE [Concomitant]
     Indication: PROPHYLAXIS
     Route: 065

REACTIONS (2)
  - HYPERSENSITIVITY [None]
  - INCORRECT DRUG ADMINISTRATION RATE [None]
